FAERS Safety Report 8501228-1 (Version None)
Quarter: 2012Q3

REPORT INFORMATION
  Report Type: 
  Country: None (occurrence: None)
  Receive Date: 20120710
  Receipt Date: 20120625
  Transmission Date: 20120928
  Serious: Yes (Hospitalization, Other)
  Sender: FDA-Public Use
  Company Number: US-ARROW-2012-11411

PATIENT
  Age: 10 Year
  Sex: Female

DRUGS (15)
  1. CYCLOPHOSPHAMIDE [Suspect]
     Dosage: 300 MG/M2
  2. VINCRISTINE [Suspect]
     Dosage: 2 MG/M2, SINGLE
     Route: 065
  3. CYCLOPHOSPHAMIDE [Suspect]
     Indication: NON-HODGKIN'S LYMPHOMA
     Dosage: 250 MG/M2, BID FOR SIX DOSES
     Route: 065
  4. METHOTREXATE [Suspect]
     Dosage: 3000 MG/M2, SINGLE
     Route: 065
  5. CYTARABINE [Suspect]
     Indication: NON-HODGKIN'S LYMPHOMA
     Dosage: 100 MG/M2, DAILY X 5 DAYS
     Route: 065
  6. RITUXIMAB [Suspect]
     Indication: NON-HODGKIN'S LYMPHOMA
     Dosage: 1875 MG/M2, EVERY 2-4 WEEKS FOR 5 TOTAL DOSES
     Route: 065
  7. PREDNISOLONE [Suspect]
     Indication: NON-HODGKIN'S LYMPHOMA
     Dosage: 60 MG/M2, DAILY FOR 5 DAYS THEN TAPERED OVER 3 DAYS
     Route: 065
  8. PREDNISOLONE [Suspect]
     Dosage: 60 MG/M2, DAILY FOR 7 DAYS
     Route: 065
  9. HYDROCORTISONE ACETATE [Suspect]
     Indication: NON-HODGKIN'S LYMPHOMA
     Dosage: GIVEN WITH METHOTREXATE
     Route: 037
  10. VINCRISTINE [Suspect]
     Indication: NON-HODGKIN'S LYMPHOMA
     Dosage: 1 MG/M2, SINGLE
     Route: 065
  11. DOXORUBICIN HCL [Suspect]
     Indication: NON-HODGKIN'S LYMPHOMA
     Dosage: 30 MG/M2, SINGLE
     Route: 065
  12. HYDROCORTISONE ACETATE [Suspect]
     Dosage: GIVEN WITH CYTARABINE
     Route: 065
  13. DOXORUBICIN HCL [Suspect]
     Dosage: 60 MG/M2, SINGLE
     Route: 065
  14. METHOTREXATE [Suspect]
     Indication: NON-HODGKIN'S LYMPHOMA
     Dosage: GIVEN WITH HYDROCORTISONE TWICE X 2
     Route: 037
  15. METHOTREXATE [Suspect]
     Dosage: 1500 MG/M2, SINGLE

REACTIONS (6)
  - FEBRILE NEUTROPENIA [None]
  - RENAL FAILURE [None]
  - SMALL INTESTINAL OBSTRUCTION [None]
  - HYPERTENSION [None]
  - ABDOMINAL COMPARTMENT SYNDROME [None]
  - SEPSIS [None]
